FAERS Safety Report 8525277-2 (Version None)
Quarter: 2012Q3

REPORT INFORMATION
  Report Type: 
  Country: None (occurrence: None)
  Receive Date: 20120720
  Receipt Date: 20120718
  Transmission Date: 20120928
  Serious: Yes (Hospitalization, Other)
  Sender: FDA-Public Use
  Company Number: PHFR2012IE003331

PATIENT
  Sex: Male

DRUGS (5)
  1. KWELL [Concomitant]
     Route: 048
  2. METFORMIN HYDROCHLORIDE [Concomitant]
     Indication: DIABETES MELLITUS
     Dosage: 500 MG, DAILY
     Route: 048
  3. CRESTOR [Concomitant]
     Indication: BLOOD CHOLESTEROL INCREASED
     Dosage: 20 MG, DAILY
  4. CLOZARIL [Suspect]
     Indication: SCHIZOPHRENIA
     Dosage: 225 MG, DAILY
     Route: 048
     Dates: start: 20090520
  5. LANSOPRAZOLE [Concomitant]
     Indication: GASTROOESOPHAGEAL REFLUX DISEASE
     Dosage: 30 MG, DAILY
     Route: 048

REACTIONS (6)
  - LOWER RESPIRATORY TRACT INFECTION [None]
  - CHEST PAIN [None]
  - WHITE BLOOD CELL COUNT INCREASED [None]
  - LUNG NEOPLASM MALIGNANT [None]
  - NEUTROPHIL COUNT INCREASED [None]
  - SMALL CELL LUNG CANCER STAGE UNSPECIFIED [None]
